FAERS Safety Report 22267329 (Version 2)
Quarter: 2023Q2

REPORT INFORMATION
  Report Type: Report from Study
  Country: US (occurrence: US)
  Receive Date: 20230428
  Receipt Date: 20230512
  Transmission Date: 20230722
  Serious: Yes (Death, Hospitalization, Other)
  Sender: FDA-Public Use
  Company Number: US-GILEAD-2023-0626061

PATIENT
  Age: 48 Year
  Sex: Male
  Weight: 60.2 kg

DRUGS (1)
  1. AXICABTAGENE CILOLEUCEL [Suspect]
     Active Substance: AXICABTAGENE CILOLEUCEL
     Indication: Haematological malignancy
     Dosage: 68 ML
     Route: 042
     Dates: start: 20220726, end: 20220726

REACTIONS (3)
  - Mucormycosis [Fatal]
  - Cytomegalovirus infection [Fatal]
  - Actinomycosis [Fatal]

NARRATIVE: CASE EVENT DATE: 20221122
